FAERS Safety Report 16767589 (Version 1)
Quarter: 2019Q4

REPORT INFORMATION
  Report Type: Spontaneous
  Country: US (occurrence: US)
  Receive Date: 20190903
  Receipt Date: 20190903
  Transmission Date: 20200122
  Serious: Yes (Hospitalization)
  Sender: FDA-Public Use
  Company Number: None

PATIENT
  Age: 56 Year
  Sex: Female

DRUGS (10)
  1. GABAPENTIN 100 MG [Concomitant]
     Active Substance: GABAPENTIN
  2. METOPROLOL SUCC 50 MG [Concomitant]
  3. POTASSIUM CL 20 MEQ [Concomitant]
     Active Substance: POTASSIUM CHLORIDE
  4. OXCARBAZEPINE 30MG [Concomitant]
  5. HYDROXYZINE 50 MG [Concomitant]
  6. SYMBICORT 80/4.5 MCG [Concomitant]
  7. SAMSCA [Suspect]
     Active Substance: TOLVAPTAN
     Indication: HYPONATRAEMIA
     Dosage: ?          OTHER FREQUENCY:EVERY 3 DAYS;?
     Route: 048
  8. OLANZAPINE 20 MG [Concomitant]
     Active Substance: OLANZAPINE
  9. SPIRONOLACTONE 25 MG [Concomitant]
     Active Substance: SPIRONOLACTONE
  10. LISINOPRIL. [Concomitant]
     Active Substance: LISINOPRIL

REACTIONS (1)
  - Fall [None]

NARRATIVE: CASE EVENT DATE: 20190903
